FAERS Safety Report 25123705 (Version 6)
Quarter: 2025Q2

REPORT INFORMATION
  Report Type: Spontaneous
  Country: NL (occurrence: NL)
  Receive Date: 20250326
  Receipt Date: 20250621
  Transmission Date: 20250716
  Serious: Yes (Hospitalization, Other)
  Sender: AUROBINDO
  Company Number: NL-SUN PHARMACEUTICAL INDUSTRIES LTD-2025RR-498748

PATIENT
  Age: 76 Year
  Sex: Male

DRUGS (12)
  1. PREDNISOLONE [Suspect]
     Active Substance: PREDNISOLONE
     Indication: Prostate cancer
     Dosage: 5 MILLIGRAM, TWO TIMES A DAY
     Route: 065
  2. ROSUVASTATIN [Interacting]
     Active Substance: ROSUVASTATIN
     Indication: Prostate cancer metastatic
     Dosage: 40 MILLIGRAM, ONCE A DAY
     Route: 065
  3. ABIRATERONE [Interacting]
     Active Substance: ABIRATERONE
     Indication: Prostate cancer metastatic
     Dosage: 1000 MILLIGRAM, ONCE A DAY
     Route: 065
  4. ABIRATERONE [Interacting]
     Active Substance: ABIRATERONE
     Indication: Hormone-refractory prostate cancer
  5. CHLORTHALIDONE [Concomitant]
     Active Substance: CHLORTHALIDONE
     Indication: Ischaemic heart disease prophylaxis
     Route: 065
  6. METOPROLOL [Concomitant]
     Active Substance: METOPROLOL
     Indication: Ischaemic heart disease prophylaxis
     Route: 065
  7. RIVAROXABAN [Concomitant]
     Active Substance: RIVAROXABAN
     Indication: Ischaemic heart disease prophylaxis
     Route: 065
  8. TRIPTORELIN [Concomitant]
     Active Substance: TRIPTORELIN
     Indication: Androgen therapy
     Route: 065
  9. TRIPTORELIN [Concomitant]
     Active Substance: TRIPTORELIN
     Indication: Prostate cancer metastatic
  10. PREDNISOLONE [Concomitant]
     Active Substance: PREDNISOLONE
     Indication: Prostate cancer metastatic
     Dosage: 5 MILLIGRAM, TWO TIMES A DAY
     Route: 065
  11. PREDNISONE [Concomitant]
     Active Substance: PREDNISONE
     Indication: Hormone-refractory prostate cancer
     Route: 065
  12. PREDNISONE [Concomitant]
     Active Substance: PREDNISONE
     Indication: Prostate cancer metastatic

REACTIONS (8)
  - Acute kidney injury [Recovering/Resolving]
  - Rhabdomyolysis [Recovering/Resolving]
  - Drug interaction [Recovered/Resolved]
  - Toxicity to various agents [Unknown]
  - Metabolic disorder [Recovering/Resolving]
  - Blood urea increased [Recovering/Resolving]
  - Hydronephrosis [Recovering/Resolving]
  - Hypocalcaemia [Recovering/Resolving]
